FAERS Safety Report 4699551-4 (Version None)
Quarter: 2005Q2

REPORT INFORMATION
  Report Type: 
  Country: None (occurrence: None)
  Receive Date: 20050622
  Receipt Date: 20050613
  Transmission Date: 20051028
  Serious: Yes (Other)
  Sender: FDA-Public Use
  Company Number: HQWYE060701JUN05

PATIENT
  Age: 26 Year
  Sex: Female

DRUGS (1)
  1. TRIONETTA (LEVONORGESTREL/ETHINYL ESTRADIOL, TABLET) [Suspect]
     Indication: ORAL CONTRACEPTION
     Dosage: 1 TAB(S), 1X/21 DAYS, ORAL
     Route: 048
     Dates: start: 20050424, end: 20050503

REACTIONS (2)
  - DYSPNOEA [None]
  - HYPOAESTHESIA ORAL [None]
